FAERS Safety Report 4590499-2 (Version None)
Quarter: 2005Q1

REPORT INFORMATION
  Report Type: 
  Country: None (occurrence: None)
  Receive Date: 20050224
  Receipt Date: 20030506
  Transmission Date: 20050727
  Serious: Yes (Death, Life-Threatening, Hospitalization, Disabling, Other)
  Sender: FDA-Public Use
  Company Number: US-GLAXOSMITHKLINE-A0407698A

PATIENT
  Age: 63 Year
  Sex: Male
  Weight: 167.3 kg

DRUGS (9)
  1. CONTAC 12-HOUR COLD CAPLET [Suspect]
     Dosage: 1CAPL PER DAY
     Route: 048
     Dates: start: 20000530, end: 20000605
  2. GLYBURIDE [Concomitant]
     Dosage: 10MG TWICE PER DAY
     Route: 048
  3. ISOSORBIDE [Concomitant]
     Route: 048
  4. NORVASC [Concomitant]
     Dosage: 10MG PER DAY
     Route: 048
  5. CLARITIN [Concomitant]
     Dosage: 10MG PER DAY
     Route: 048
  6. SPIRONOLACTONE [Concomitant]
     Dosage: 12.5MG PER DAY
     Route: 048
  7. NITROQUICK [Concomitant]
     Route: 048
  8. BETAPACE [Concomitant]
     Dosage: 160MG TWICE PER DAY
     Route: 048
  9. LASIX [Concomitant]
     Dosage: 40MG TWICE PER DAY
     Route: 048

REACTIONS (17)
  - ATRIAL FIBRILLATION [None]
  - CARDIAC ARREST [None]
  - CEREBRAL INFARCTION [None]
  - CHEST PAIN [None]
  - COMA [None]
  - DIZZINESS [None]
  - DYSPNOEA [None]
  - HEADACHE [None]
  - HEMIANOPIA HOMONYMOUS [None]
  - HYPOREFLEXIA [None]
  - HYPOXIC ENCEPHALOPATHY [None]
  - ISCHAEMIC STROKE [None]
  - LETHARGY [None]
  - LIFE SUPPORT [None]
  - NAUSEA [None]
  - PUPIL FIXED [None]
  - RESPIRATORY ARREST [None]
